FAERS Safety Report 4664463-9 (Version None)
Quarter: 2005Q2

REPORT INFORMATION
  Report Type: 
  Country: None (occurrence: None)
  Receive Date: 20050516
  Receipt Date: 20050516
  Transmission Date: 20051028
  Serious: Yes (Other)
  Sender: FDA-Public Use
  Company Number: None

PATIENT
  Age: 81 Year
  Sex: Male
  Weight: 109 kg

DRUGS (1)
  1. AMIODARONE HYDROCHLORIDE [Suspect]
     Dosage: 200 MG DAILY

REACTIONS (2)
  - DYSKINESIA [None]
  - TREMOR [None]
